FAERS Safety Report 9352947 (Version 1)
Quarter: 2013Q2

REPORT INFORMATION
  Report Type: Report from Study
  Country: US (occurrence: US)
  Receive Date: 20130618
  Receipt Date: 20130618
  Transmission Date: 20140414
  Serious: Yes (Death, Hospitalization)
  Sender: FDA-Public Use
  Company Number: US-GENZYME-CLOF-1002681

PATIENT
  Age: 78 Year
  Sex: Male
  Weight: 67.73 kg

DRUGS (1)
  1. CLOLAR [Suspect]
     Indication: ACUTE MYELOID LEUKAEMIA
     Dosage: 30 MG/M2/DAY BY 1 HOUR INFUSIONX 5 DAYS
     Route: 042
     Dates: start: 20130525, end: 20130529

REACTIONS (5)
  - Febrile neutropenia [Fatal]
  - Respiratory failure [Fatal]
  - Sepsis [Fatal]
  - Platelet count decreased [Unknown]
  - White blood cell count decreased [Unknown]
